FAERS Safety Report 9018733 (Version 1)
Quarter: 2013Q1

REPORT INFORMATION
  Report Type: Spontaneous
  Country: US (occurrence: US)
  Receive Date: 20130118
  Receipt Date: 20130118
  Transmission Date: 20140127
  Serious: No
  Sender: FDA-Public Use
  Company Number: US-PFIZER INC-2013022535

PATIENT
  Age: 44 Year
  Sex: Female
  Weight: 97.51 kg

DRUGS (1)
  1. NICOTROL INHALER [Suspect]
     Indication: SMOKING CESSATION THERAPY
     Dosage: UNK, 6X/DAY
     Dates: start: 20130116

REACTIONS (2)
  - Toothache [Unknown]
  - Middle insomnia [Unknown]
